FAERS Safety Report 21739174 (Version 2)
Quarter: 2022Q4

REPORT INFORMATION
  Report Type: Spontaneous
  Country: IT (occurrence: IT)
  Receive Date: 20221216
  Receipt Date: 20221226
  Transmission Date: 20230112
  Serious: Yes (Hospitalization, Other)
  Sender: FDA-Public Use
  Company Number: IT-Accord-292388

PATIENT
  Age: 56 Year
  Sex: Male

DRUGS (3)
  1. TACROLIMUS [Suspect]
     Active Substance: TACROLIMUS
     Indication: Immunosuppression
  2. MYCOPHENOLATE MOFETIL [Concomitant]
     Active Substance: MYCOPHENOLATE MOFETIL
     Indication: Immunosuppression
  3. PREDNISONE [Concomitant]
     Active Substance: PREDNISONE
     Indication: Immunosuppression

REACTIONS (10)
  - Purtscher retinopathy [Recovering/Resolving]
  - Myositis [Recovering/Resolving]
  - Renal tubular necrosis [Unknown]
  - Retinal microangiopathy [Recovering/Resolving]
  - Glaucoma [Recovered/Resolved]
  - Retinal ischaemia [Recovering/Resolving]
  - Toxicity to various agents [Unknown]
  - Immune-mediated myositis [Recovering/Resolving]
  - Retinal haemorrhage [Recovering/Resolving]
  - Ocular hypertension [Recovered/Resolved]
